FAERS Safety Report 21376733 (Version 1)
Quarter: 2022Q3

REPORT INFORMATION
  Report Type: Spontaneous
  Country: US (occurrence: None)
  Receive Date: 20220924
  Receipt Date: 20220924
  Transmission Date: 20221027
  Serious: Yes (Disabling)
  Sender: FDA-Public Use
  Company Number: None

PATIENT
  Age: 62 Year
  Sex: Male
  Weight: 80.55 kg

DRUGS (1)
  1. LIPITOR [Suspect]
     Active Substance: ATORVASTATIN CALCIUM
     Indication: Blood cholesterol
     Dates: start: 20220315, end: 20220921

REACTIONS (8)
  - Dizziness [None]
  - Feeling abnormal [None]
  - Dizziness [None]
  - Arthralgia [None]
  - Nausea [None]
  - Flatulence [None]
  - Disturbance in attention [None]
  - Therapy cessation [None]

NARRATIVE: CASE EVENT DATE: 20220922
